FAERS Safety Report 10253025 (Version 1)
Quarter: 2014Q2

REPORT INFORMATION
  Report Type: Spontaneous
  Country: US (occurrence: US)
  Receive Date: 20140623
  Receipt Date: 20140623
  Transmission Date: 20141212
  Serious: Yes (Hospitalization, Other)
  Sender: FDA-Public Use
  Company Number: US-ABBVIE-14P-163-1248392-00

PATIENT
  Sex: Male

DRUGS (1)
  1. ANDROGEL [Suspect]
     Indication: BLOOD TESTOSTERONE DECREASED
     Dates: start: 2008, end: 201305

REACTIONS (6)
  - Injury [Unknown]
  - Pulmonary embolism [Unknown]
  - Thrombosis [Unknown]
  - Emotional distress [Unknown]
  - Pain [Unknown]
  - Economic problem [Unknown]
